FAERS Safety Report 5154764-2 (Version None)
Quarter: 2006Q4

REPORT INFORMATION
  Report Type: 
  Country: None (occurrence: None)
  Receive Date: 20061115
  Receipt Date: 20061115
  Transmission Date: 20070319
  Serious: Yes (Other)
  Sender: FDA-Public Use
  Company Number: None

PATIENT
  Age: 57 Year
  Weight: 76.6579 kg

DRUGS (4)
  1. KETEK [Suspect]
     Indication: EAR INFECTION
     Dosage: 400 MG   2 DAILY  PO
     Route: 048
     Dates: start: 20061017, end: 20061018
  2. KETEK [Suspect]
     Indication: UPPER RESPIRATORY TRACT INFECTION
     Dosage: 400 MG   2 DAILY  PO
     Route: 048
     Dates: start: 20061017, end: 20061018
  3. KETEK [Suspect]
     Indication: EAR INFECTION
     Dosage: 400 MG   2 DAILY  PO
     Route: 048
     Dates: start: 20061017, end: 20061018
  4. KETEK [Suspect]
     Indication: UPPER RESPIRATORY TRACT INFECTION
     Dosage: 400 MG   2 DAILY  PO
     Route: 048
     Dates: start: 20061017, end: 20061018

REACTIONS (17)
  - ABDOMINAL PAIN [None]
  - CRYING [None]
  - DIZZINESS [None]
  - GASTROINTESTINAL DISORDER [None]
  - GENERAL PHYSICAL HEALTH DETERIORATION [None]
  - HEPATIC STEATOSIS [None]
  - IMPAIRED WORK ABILITY [None]
  - LIVER DISORDER [None]
  - MALAISE [None]
  - NAUSEA [None]
  - PAIN [None]
  - PHARMACEUTICAL PRODUCT COMPLAINT [None]
  - POOR QUALITY DRUG ADMINISTERED [None]
  - RETCHING [None]
  - SEPSIS [None]
  - THERAPY NON-RESPONDER [None]
  - VOMITING [None]
